FAERS Safety Report 4586469-0 (Version None)
Quarter: 2005Q1

REPORT INFORMATION
  Report Type: 
  Country: None (occurrence: None)
  Receive Date: 20050218
  Receipt Date: 20050120
  Transmission Date: 20050727
  Serious: Yes (Life-Threatening)
  Sender: FDA-Public Use
  Company Number: FR-ROCHE-393138

PATIENT
  Age: 52 Year
  Sex: Female
  Weight: 57 kg

DRUGS (5)
  1. PEGASYS [Suspect]
     Indication: DRUG USE FOR UNKNOWN INDICATION
     Route: 058
     Dates: start: 20030905, end: 20041102
  2. PARACETAMOL [Suspect]
     Indication: DRUG USE FOR UNKNOWN INDICATION
     Route: 065
     Dates: end: 20041101
  3. RIVOTRIL [Concomitant]
     Indication: DRUG USE FOR UNKNOWN INDICATION
  4. DIPROSONE [Concomitant]
     Indication: PRURITUS
     Dates: start: 20041025
  5. XYZAL [Concomitant]
     Indication: PRURITUS
     Route: 048
     Dates: start: 20041025, end: 20041101

REACTIONS (6)
  - CEREBRAL HAEMORRHAGE [None]
  - GINGIVAL BLEEDING [None]
  - IDIOPATHIC THROMBOCYTOPENIC PURPURA [None]
  - NORMOCHROMIC NORMOCYTIC ANAEMIA [None]
  - PLATELET COUNT DECREASED [None]
  - VISUAL ACUITY REDUCED [None]
